FAERS Safety Report 6520213-2 (Version None)
Quarter: 2009Q4

REPORT INFORMATION
  Report Type: 
  Country: None (occurrence: None)
  Receive Date: 20091229
  Receipt Date: 20091217
  Transmission Date: 20100525
  Serious: Yes (Other)
  Sender: FDA-Public Use
  Company Number: PHHY2009DE52578

PATIENT
  Sex: Male

DRUGS (13)
  1. RASILEZ [Suspect]
     Indication: HYPERTENSION
     Dosage: 150 MG PER DAY
     Route: 048
     Dates: start: 20091121, end: 20091122
  2. ENALAPRIL/HCT [Concomitant]
     Indication: HYPERTENSION
     Dosage: 1 DF, QD
  3. ENALAPRIL [Concomitant]
     Indication: HYPERTENSION
     Dosage: 1 DF, QD
  4. FELODIPINE [Concomitant]
     Indication: HYPERTENSION
     Dosage: 1 DF, BID
  5. CARVEDILOL [Concomitant]
     Indication: HYPERTENSION
     Dosage: 1 DF, BID
  6. PHYSIOTENS [Concomitant]
     Indication: HYPERTENSION
     Dosage: 1 DF, BID
  7. SPIRONOLACTONE [Concomitant]
     Indication: HYPERTENSION
     Dosage: UNK
     Dates: start: 20090901, end: 20091101
  8. HYDROCHLOROTHIAZIDE [Concomitant]
     Indication: HYPERTENSION
     Dosage: 1 DF, QD
  9. MOXONIDINE [Concomitant]
     Indication: HYPERTENSION
     Dosage: 1 DF, BID
  10. LEVOTHYROXINE SODIUM [Concomitant]
     Indication: HYPOTHYROIDISM
     Dosage: 1 DF, QD
  11. TRIMIPRAMINE [Concomitant]
     Indication: SLEEP DISORDER
     Dosage: 1 DF, QD
  12. SIMVASTATIN [Concomitant]
     Indication: HYPERCHOLESTEROLAEMIA
     Dosage: 1 DF, QD
  13. CITALOPRAM HYDROBROMIDE [Concomitant]
     Indication: DEPRESSION
     Dosage: 1 DF, QD

REACTIONS (2)
  - BLOOD PRESSURE INCREASED [None]
  - HEADACHE [None]
